FAERS Safety Report 9940254 (Version 1)
Quarter: 2014Q1

REPORT INFORMATION
  Report Type: Report from Study
  Country: US (occurrence: US)
  Receive Date: 20140303
  Receipt Date: 20140303
  Transmission Date: 20141002
  Serious: No
  Sender: FDA-Public Use
  Company Number: US-ABBVIE-13P-163-1033528-00

PATIENT
  Age: 61 Year
  Sex: Female
  Weight: 103.06 kg

DRUGS (7)
  1. HUMIRA [Suspect]
     Indication: RHEUMATOID ARTHRITIS
     Dates: start: 2009
  2. METHOTREXATE [Concomitant]
     Indication: RHEUMATOID ARTHRITIS
  3. ARMOUR THYROID [Concomitant]
     Indication: HYPOTHYROIDISM
  4. MELOXICAM [Concomitant]
     Indication: RHEUMATOID ARTHRITIS
  5. DETROL LA [Concomitant]
     Indication: URINARY INCONTINENCE
  6. FOLIC ACID [Concomitant]
     Indication: VITAMIN SUPPLEMENTATION
  7. DIOVAN [Concomitant]
     Indication: HYPERTENSION

REACTIONS (3)
  - Pyrexia [Recovered/Resolved]
  - Dysphonia [Not Recovered/Not Resolved]
  - Nasopharyngitis [Not Recovered/Not Resolved]
